FAERS Safety Report 4311075-2 (Version None)
Quarter: 2004Q1

REPORT INFORMATION
  Report Type: 
  Country: None (occurrence: None)
  Receive Date: 20040302
  Receipt Date: 20040218
  Transmission Date: 20041129
  Serious: Yes (Other)
  Sender: FDA-Public Use
  Company Number: US-JNJFOC-20040204453

PATIENT
  Age: 43 Year
  Sex: Male

DRUGS (1)
  1. DURAGESIC [Suspect]
     Indication: DRUG USE FOR UNKNOWN INDICATION
     Dosage: 100 UG/HR, TRANSDERMAL
     Route: 062
     Dates: end: 20031101

REACTIONS (9)
  - AGITATION [None]
  - AGRAPHIA [None]
  - BRAIN DAMAGE [None]
  - HYPOTHALAMO-PITUITARY DISORDERS [None]
  - MUSCLE CONTRACTURE [None]
  - OPTIC NERVE DISORDER [None]
  - PHARMACEUTICAL PRODUCT COMPLAINT [None]
  - POSTURING [None]
  - SPEECH DISORDER [None]
